FAERS Safety Report 20490194 (Version 2)
Quarter: 2022Q1

REPORT INFORMATION
  Report Type: Spontaneous
  Country: US (occurrence: US)
  Receive Date: 20220218
  Receipt Date: 20220307
  Transmission Date: 20220424
  Serious: Yes (Other)
  Sender: FDA-Public Use
  Company Number: US-PFIZER INC-2019509169

PATIENT
  Age: 83 Year
  Sex: Female

DRUGS (1)
  1. PREMARIN [Suspect]
     Active Substance: ESTROGENS, CONJUGATED
     Indication: Menopausal symptoms
     Dosage: 1 G, ALTERNATE DAY (EVERY OTHER DAY)
     Route: 067

REACTIONS (2)
  - Surgery [Unknown]
  - Off label use [Unknown]
